FAERS Safety Report 17976268 (Version 13)
Quarter: 2022Q4

REPORT INFORMATION
  Report Type: Report from Study
  Country: GB (occurrence: GB)
  Receive Date: 20200703
  Receipt Date: 20221111
  Transmission Date: 20230113
  Serious: Yes (Death, Congenital Anomaly, Other)
  Sender: FDA-Public Use
  Company Number: GB-AUROBINDO-AUR-APL-2020-031981

PATIENT
  Age: 4 Day
  Sex: Male
  Weight: 2.8 kg

DRUGS (18)
  1. ABACAVIR [Suspect]
     Active Substance: ABACAVIR
     Indication: HIV infection
     Dosage: 400 DOSAGE FORM, ONCE A DAY
     Route: 064
  2. ABACAVIR [Suspect]
     Active Substance: ABACAVIR
     Dosage: 1 DOSAGE FORM, ONCE A DAY
     Route: 064
  3. LAMIVUDINE [Suspect]
     Active Substance: LAMIVUDINE
     Indication: HIV infection
     Dosage: 1 DOSAGE FORM, ONCE A DAY
     Route: 064
  4. NEVIRAPINE [Suspect]
     Active Substance: NEVIRAPINE
     Indication: HIV infection
     Dosage: 400 MILLIGRAM, ONCE A DAY
     Route: 064
  5. ASPIRIN [Suspect]
     Active Substance: ASPIRIN
     Indication: Hypertension
     Dosage: 1 DOSAGE FORM,1 (TRIMESTER)
     Route: 064
  6. ABACAVIR\LAMIVUDINE [Suspect]
     Active Substance: ABACAVIR\LAMIVUDINE
     Indication: HIV infection
     Dosage: 1 DOSAGE FORM, ONCE A DAY (400 DOSAGE FORM, QD (400 DOSAGE FORM, QD (400 DOSAGE FORM, ONCE A DAY)))
     Route: 064
  7. ABACAVIR\LAMIVUDINE [Suspect]
     Active Substance: ABACAVIR\LAMIVUDINE
     Dosage: 1 DOSAGE FORM, ONCE A DAY (1 DF, QD (DOSE: 1 TABLET/CAPSULE; STRENGTH: 600 MG/ 300 MG)
     Route: 064
  8. ABACAVIR\LAMIVUDINE [Suspect]
     Active Substance: ABACAVIR\LAMIVUDINE
     Dosage: 400 DOSAGE FORM, ONCE A DAY
     Route: 064
  9. ABACAVIR\LAMIVUDINE [Suspect]
     Active Substance: ABACAVIR\LAMIVUDINE
     Dosage: 600 MILLIGRAM, ONCE A DAY
     Route: 064
  10. ABACAVIR\LAMIVUDINE [Suspect]
     Active Substance: ABACAVIR\LAMIVUDINE
     Dosage: 300 MILLIGRAM, ONCE A DAY
     Route: 064
  11. CHOLECALCIFEROL [Suspect]
     Active Substance: CHOLECALCIFEROL
     Indication: Product used for unknown indication
     Dosage: UNK,PRIOR TO CONCEPTION, DURING 1, 2 AND 3 TRIMESTER ( 39 WEEKS), VITAMIN
     Route: 064
  12. COMBIVIR [Suspect]
     Active Substance: LAMIVUDINE\ZIDOVUDINE
     Indication: HIV infection
     Dosage: 900 MILLIGRAM, ONCE A DAY
     Route: 064
  13. ERGOCALCIFEROL [Suspect]
     Active Substance: ERGOCALCIFEROL
     Indication: Product used for unknown indication
     Dosage: UNK 1 (TRIMESTER),(PRIOR TO CONCEPTION, DURING 1, 2 AND 3 TRIMESTER ( 39 WEEKS), VITAMIN D2)
     Route: 064
  14. LABETALOL [Suspect]
     Active Substance: LABETALOL\LABETALOL HYDROCHLORIDE
     Indication: Hypertension
     Dosage: 1 DOSAGE FORM,(1 TRIMESTER)
     Route: 064
  15. NIFEDIPINE [Suspect]
     Active Substance: NIFEDIPINE
     Indication: Hypertension
     Dosage: UNK, 1 (TRIMESTER)
     Route: 064
  16. VIRAMUNE [Suspect]
     Active Substance: NEVIRAPINE
     Indication: HIV infection
     Dosage: 400 MILLIGRAM, ONCE A DAY (TAB/CAP)
     Route: 064
  17. VITAMIN D [Suspect]
     Active Substance: VITAMIN D NOS
     Indication: Product used for unknown indication
     Dosage: UNK, 1 (TRIMESTER)
     Route: 064
  18. LAMIVUDINE [Suspect]
     Active Substance: LAMIVUDINE
     Indication: HIV infection
     Dosage: 1 DOSAGE FORM, ONCE A DAY
     Route: 064

REACTIONS (15)
  - Death [Fatal]
  - Polydactyly [Fatal]
  - Foetal exposure during pregnancy [Fatal]
  - Gene mutation [Fatal]
  - Atrioventricular septal defect [Fatal]
  - Trisomy 21 [Fatal]
  - Pulmonary hypertension [Fatal]
  - Congenital central nervous system anomaly [Fatal]
  - Macrocephaly [Fatal]
  - Neurodevelopmental disorder [Fatal]
  - Dandy-Walker syndrome [Fatal]
  - Speech disorder developmental [Fatal]
  - Attention deficit hyperactivity disorder [Fatal]
  - Ataxia [Fatal]
  - Pre-eclampsia [Unknown]

NARRATIVE: CASE EVENT DATE: 20190816
